FAERS Safety Report 4960210-1 (Version None)
Quarter: 2006Q1

REPORT INFORMATION
  Report Type: 
  Country: None (occurrence: None)
  Receive Date: 20060328
  Receipt Date: 20060315
  Transmission Date: 20060701
  Serious: Yes (Other)
  Sender: FDA-Public Use
  Company Number: 2006-03-1278

PATIENT
  Age: 78 Year
  Sex: Female

DRUGS (3)
  1. IPRATROPIUM BROMIDE [Suspect]
     Indication: RESPIRATORY FAILURE
     Dosage: INHALATION
     Route: 055
  2. LEVALBUTEROL HCL [Suspect]
     Indication: RESPIRATORY FAILURE
     Dosage: INHALATION
     Route: 055
  3. CHEMOTHERAPY REGIMENS [Concomitant]

REACTIONS (5)
  - DELIRIUM [None]
  - MEDICAL DEVICE COMPLICATION [None]
  - MENTAL STATUS CHANGES [None]
  - PUPIL FIXED [None]
  - REVERSIBLE POSTERIOR LEUKOENCEPHALOPATHY SYNDROME [None]
